FAERS Safety Report 10867778 (Version 1)
Quarter: 2015Q1

REPORT INFORMATION
  Report Type: Spontaneous
  Country: US (occurrence: US)
  Receive Date: 20150225
  Receipt Date: 20150225
  Transmission Date: 20150721
  Serious: No
  Sender: FDA-Public Use
  Company Number: US-MYLANLABS-2014S1007307

PATIENT
  Age: 70 Year
  Sex: Female
  Weight: 60.78 kg

DRUGS (3)
  1. ALPRAZOLAM TABLETS, USP [Suspect]
     Active Substance: ALPRAZOLAM
     Indication: INSOMNIA
     Dosage: .5 MG,3XW
     Route: 048
  2. ESTRADIOL. [Concomitant]
     Active Substance: ESTRADIOL
     Dosage: 1 MG,QD
     Route: 048
  3. LEVOTHYROXINE [Concomitant]
     Active Substance: LEVOTHYROXINE
     Dosage: 75 ?G,QD
     Route: 048

REACTIONS (3)
  - Salivary hypersecretion [Not Recovered/Not Resolved]
  - Palpitations [Not Recovered/Not Resolved]
  - Asthenia [Not Recovered/Not Resolved]

NARRATIVE: CASE EVENT DATE: 201401
